FAERS Safety Report 5207601-1 (Version None)
Quarter: 2007Q1

REPORT INFORMATION
  Report Type: 
  Country: None (occurrence: None)
  Receive Date: 20070112
  Receipt Date: 20070102
  Transmission Date: 20070707
  Serious: Yes (Other)
  Sender: FDA-Public Use
  Company Number: GB-PFIZER INC-2006148361

PATIENT
  Age: 23 Year
  Sex: Female
  Weight: 123 kg

DRUGS (1)
  1. DEPO-PROVERA [Suspect]
     Indication: CONTRACEPTION
     Route: 030
     Dates: start: 20050401, end: 20050401

REACTIONS (3)
  - INFERTILITY FEMALE [None]
  - MENSTRUATION IRREGULAR [None]
  - OVARIAN CYST [None]
